FAERS Safety Report 19300405 (Version 1)
Quarter: 2021Q2

REPORT INFORMATION
  Report Type: Spontaneous
  Country: US (occurrence: US)
  Receive Date: 20210525
  Receipt Date: 20210525
  Transmission Date: 20210717
  Serious: Yes (Hospitalization)
  Sender: FDA-Public Use
  Company Number: None

PATIENT
  Age: 62 Year
  Sex: Male
  Weight: 88.7 kg

DRUGS (1)
  1. DECITABINE (5?AZA2 DEOXYCYTIDINE) [Suspect]
     Active Substance: DECITABINE
     Dates: end: 20210504

REACTIONS (16)
  - Tachycardia [None]
  - Hydronephrosis [None]
  - Joint effusion [None]
  - Joint swelling [None]
  - Hypotension [None]
  - Cough [None]
  - Hydroureter [None]
  - Atelectasis [None]
  - Acute kidney injury [None]
  - Infection [None]
  - Ureterolithiasis [None]
  - Arthralgia [None]
  - Confusional state [None]
  - Soft tissue haemorrhage [None]
  - Pyrexia [None]
  - Pneumonia [None]

NARRATIVE: CASE EVENT DATE: 20210520
